FAERS Safety Report 25407562 (Version 4)
Quarter: 2025Q3

REPORT INFORMATION
  Report Type: Report from Study
  Country: MX (occurrence: MX)
  Receive Date: 20250606
  Receipt Date: 20250718
  Transmission Date: 20251021
  Serious: Yes (Other)
  Sender: UCB
  Company Number: MX-UCBSA-2025033453

PATIENT
  Age: 8 Year
  Sex: Female
  Weight: 21 kg

DRUGS (6)
  1. FENFLURAMINE HYDROCHLORIDE [Suspect]
     Active Substance: FENFLURAMINE HYDROCHLORIDE
     Indication: Severe myoclonic epilepsy of infancy
     Dosage: 0.9 MILLILITER, 2X/DAY (BID)
     Route: 048
     Dates: start: 20250507
  2. FENFLURAMINE HYDROCHLORIDE [Suspect]
     Active Substance: FENFLURAMINE HYDROCHLORIDE
     Dosage: 1.98 MILLIGRAM, 2X/DAY (BID)
     Route: 048
     Dates: end: 20250515
  3. CLONAZEPAM [Concomitant]
     Active Substance: CLONAZEPAM
     Indication: Severe myoclonic epilepsy of infancy
     Dosage: 0.5 MILLIGRAM, ONCE DAILY (QD)
     Dates: start: 2024
  4. TOPIRAMATE [Concomitant]
     Active Substance: TOPIRAMATE
     Indication: Severe myoclonic epilepsy of infancy
     Dosage: 100 MILLIGRAM, 2X/DAY (BID)
     Route: 048
     Dates: start: 2023
  5. VALPROATE [Concomitant]
     Active Substance: VALPROIC ACID
     Indication: Severe myoclonic epilepsy of infancy
     Dosage: 250 MILLIGRAM, 2X/DAY (BID)
     Dates: start: 2024
  6. CANNABIS SATIVA SUBSP. INDICA TOP [Concomitant]
     Active Substance: CANNABIS SATIVA SUBSP. INDICA TOP
     Indication: Severe myoclonic epilepsy of infancy
     Dosage: 15 MILLIGRAM, 2X/DAY (BID)
     Route: 048
     Dates: start: 20250428, end: 20250523

REACTIONS (7)
  - Petit mal epilepsy [Recovering/Resolving]
  - Drop attacks [Recovering/Resolving]
  - Status epilepticus [Recovering/Resolving]
  - Seizure [Recovered/Resolved]
  - Decreased appetite [Recovered/Resolved]
  - Weight decreased [Unknown]
  - Dizziness [Recovered/Resolved]

NARRATIVE: CASE EVENT DATE: 20250507
